FAERS Safety Report 8868961 (Version 2)
Quarter: 2013Q1

REPORT INFORMATION
  Report Type: Spontaneous
  Country: US (occurrence: US)
  Receive Date: 20121027
  Receipt Date: 20130326
  Transmission Date: 20140127
  Serious: No
  Sender: FDA-Public Use
  Company Number: US-009507513-1210USA009957

PATIENT
  Age: 22 Year
  Sex: Female
  Weight: 65.76 kg

DRUGS (1)
  1. IMPLANON [Suspect]
     Indication: CONTRACEPTION
     Dosage: EVERY 3 YEARS
     Route: 058
     Dates: start: 20091114

REACTIONS (6)
  - Muscle spasms [Unknown]
  - Metrorrhagia [Unknown]
  - Metrorrhagia [Unknown]
  - Menstruation delayed [Unknown]
  - Metrorrhagia [Unknown]
  - Nausea [Unknown]
